FAERS Safety Report 11736085 (Version 1)
Quarter: 2015Q4

REPORT INFORMATION
  Report Type: Spontaneous
  Country: US (occurrence: US)
  Receive Date: 20151113
  Receipt Date: 20151113
  Transmission Date: 20160304
  Serious: No
  Sender: FDA-Public Use
  Company Number: US-JNJFOC-20151001102

PATIENT
  Age: 32 Year
  Sex: Female
  Weight: 58.97 kg

DRUGS (2)
  1. TOPAMAX [Suspect]
     Active Substance: TOPIRAMATE
     Indication: MIGRAINE
     Route: 048
     Dates: start: 201502, end: 2015
  2. TOPAMAX [Suspect]
     Active Substance: TOPIRAMATE
     Indication: MIGRAINE
     Route: 048
     Dates: start: 2015, end: 201506

REACTIONS (7)
  - Nausea [Recovered/Resolved]
  - Wrong technique in product usage process [Unknown]
  - Malaise [Recovered/Resolved]
  - Madarosis [Recovering/Resolving]
  - Therapeutic response increased [Unknown]
  - Alopecia [Recovering/Resolving]
  - Anxiety [Recovered/Resolved]

NARRATIVE: CASE EVENT DATE: 201502
